FAERS Safety Report 6989001-7 (Version None)
Quarter: 2010Q3

REPORT INFORMATION
  Report Type: 
  Country: None (occurrence: None)
  Receive Date: 20100916
  Receipt Date: 20090907
  Transmission Date: 20110219
  Serious: Yes (Other)
  Sender: FDA-Public Use
  Company Number: DE-PFIZER INC-2008052176

PATIENT
  Sex: Male

DRUGS (4)
  1. LYRICA [Suspect]
     Indication: POLYNEUROPATHY
     Dosage: UNK
     Route: 048
     Dates: start: 20040101
  2. MIRTAZAPINE [Concomitant]
     Indication: SLEEP DISORDER
     Dosage: AS NEEDED
  3. CARVEDILOL [Concomitant]
  4. MELATONIN [Concomitant]

REACTIONS (6)
  - BRADYCARDIA [None]
  - DIZZINESS [None]
  - SUPRAVENTRICULAR EXTRASYSTOLES [None]
  - TACHYCARDIA [None]
  - VENTRICULAR EXTRASYSTOLES [None]
  - WEIGHT INCREASED [None]
